FAERS Safety Report 13129130 (Version 1)
Quarter: 2017Q1

REPORT INFORMATION
  Report Type: Spontaneous
  Country: US (occurrence: US)
  Receive Date: 20170118
  Receipt Date: 20170118
  Transmission Date: 20170428
  Serious: Yes (Death, Life-Threatening, Hospitalization)
  Sender: FDA-Public Use
  Company Number: None

PATIENT
  Sex: Female
  Weight: 63.56 kg

DRUGS (9)
  1. HYDROCORTISONE CREAM [Concomitant]
     Active Substance: HYDROCORTISONE
  2. DIOVAN HCT [Concomitant]
     Active Substance: HYDROCHLOROTHIAZIDE\VALSARTAN
  3. B COMPLEX W/B12 [Concomitant]
  4. IMODIUM AD [Concomitant]
     Active Substance: LOPERAMIDE HYDROCHLORIDE
  5. TUMERIC VEGETARIAN [Concomitant]
  6. OXYCODONE [Concomitant]
     Active Substance: OXYCODONE
  7. HALAVEN [Suspect]
     Active Substance: ERIBULIN MESYLATE
     Indication: BREAST CANCER
     Route: 042
     Dates: start: 20160113, end: 20160113
  8. ALBUTEROL. [Concomitant]
     Active Substance: ALBUTEROL
  9. PHENERGAN [Concomitant]
     Active Substance: PROMETHAZINE HYDROCHLORIDE

REACTIONS (13)
  - Dyspnoea [None]
  - Decreased appetite [None]
  - Feeding disorder [None]
  - Speech disorder [None]
  - Fatigue [None]
  - Blood pressure decreased [None]
  - Liver disorder [None]
  - Tongue ulceration [None]
  - Stomatitis [None]
  - Pharyngeal ulceration [None]
  - Abasia [None]
  - Renal failure [None]
  - Dysgraphia [None]
